FAERS Safety Report 5517036-X (Version None)
Quarter: 2007Q4

REPORT INFORMATION
  Report Type: 
  Country: None (occurrence: None)
  Receive Date: 20071114
  Receipt Date: 20070713
  Transmission Date: 20080405
  Serious: No
  Sender: FDA-Public Use
  Company Number: A0663540A

PATIENT
  Age: 67 Year
  Sex: Female

DRUGS (1)
  1. COMMIT [Suspect]
     Indication: SMOKING CESSATION THERAPY
     Route: 002
     Dates: start: 20070610, end: 20070610

REACTIONS (3)
  - BURNING SENSATION [None]
  - CHEST PAIN [None]
  - DYSGEUSIA [None]
